FAERS Safety Report 7798617-X (Version None)
Quarter: 2011Q4

REPORT INFORMATION
  Report Type: 
  Country: None (occurrence: None)
  Receive Date: 20111005
  Receipt Date: 20110920
  Transmission Date: 20120403
  Serious: Yes (Hospitalization)
  Sender: FDA-Public Use
  Company Number: US-GILEAD-2011-0042294

PATIENT

DRUGS (2)
  1. LETAIRIS [Suspect]
     Indication: PULMONARY HYPERTENSION
     Route: 048
     Dates: start: 20080811
  2. LETAIRIS [Suspect]
     Indication: SCLERODERMA

REACTIONS (2)
  - OXYGEN SUPPLEMENTATION [None]
  - HIP FRACTURE [None]
